FAERS Safety Report 21249524 (Version 2)
Quarter: 2022Q3

REPORT INFORMATION
  Report Type: Spontaneous
  Country: JP (occurrence: JP)
  Receive Date: 20220824
  Receipt Date: 20220830
  Transmission Date: 20221026
  Serious: Yes (Hospitalization)
  Sender: FDA-Public Use
  Company Number: JP-BAYER-2022A097429

PATIENT
  Age: 78 Year
  Sex: Female

DRUGS (1)
  1. RIVAROXABAN [Suspect]
     Active Substance: RIVAROXABAN
     Indication: Atrial fibrillation
     Route: 048
     Dates: end: 20220713

REACTIONS (2)
  - Haemorrhage subcutaneous [Recovering/Resolving]
  - Activated partial thromboplastin time prolonged [Unknown]

NARRATIVE: CASE EVENT DATE: 20220711
